FAERS Safety Report 5213932-1 (Version None)
Quarter: 2007Q1

REPORT INFORMATION
  Report Type: 
  Country: None (occurrence: None)
  Receive Date: 20070111
  Receipt Date: 20061215
  Transmission Date: 20070707
  Serious: Yes (Life-Threatening, Other)
  Sender: FDA-Public Use
  Company Number: DISJP-06-0700

PATIENT
  Age: 76 Year
  Sex: Male
  Weight: 58 kg

DRUGS (19)
  1. DIPRIVAN [Suspect]
     Indication: EPIDURAL ANAESTHESIA
     Dosage: 110 MG, INTRAVENOUS
     Route: 042
     Dates: start: 20061205, end: 20061205
  2. SULPERAZON [Concomitant]
  3. MARCAINE [Concomitant]
  4. VECURONIUM BROMIDE [Concomitant]
  5. FENTANYL CITRATE [Concomitant]
  6. ATROPINE SULFATE [Concomitant]
  7. FULCALIG 1 (ALL OTHER THERAPEUTIC PRODUCTS) [Concomitant]
  8. MINERALIN [Concomitant]
  9. XYOCAINE (LIDOCAINE HYDROCHLORIDE) [Concomitant]
  10. FORANE [Concomitant]
  11. EPHEDRINE SUL CAP [Concomitant]
  12. ALBUMINATE (ALL OTHER THERAPEUTIC PRODUCTS) [Concomitant]
  13. HESPANDER [Concomitant]
  14. PANTHENYL (ALL OTHER THERAPEUTIC PRODUCTS) [Concomitant]
  15. KAYTWO (MENATETRENONE) [Concomitant]
  16. SOLYUGEN G (ALL OTHER THERAPEUTIC PRODUCTS) [Concomitant]
  17. INTRAFAT (INTRAFAT) [Concomitant]
  18. CEFMETAZON (CEFMETAZOLE SODIUM) [Concomitant]
  19. THIOPENTAL SODIUM [Concomitant]

REACTIONS (7)
  - ANAPHYLACTIC REACTION [None]
  - BLOOD PRESSURE DECREASED [None]
  - DISSEMINATED INTRAVASCULAR COAGULATION [None]
  - ERYTHEMA [None]
  - NO THERAPEUTIC RESPONSE [None]
  - OPERATIVE HAEMORRHAGE [None]
  - PANCYTOPENIA [None]
